FAERS Safety Report 10308749 (Version 1)
Quarter: 2014Q3

REPORT INFORMATION
  Report Type: Spontaneous
  Country: CL (occurrence: CL)
  Receive Date: 20140716
  Receipt Date: 20140716
  Transmission Date: 20150326
  Serious: Yes (Other)
  Sender: FDA-Public Use
  Company Number: CL-PFIZER INC-2014195380

PATIENT
  Age: 84 Year
  Sex: Male

DRUGS (4)
  1. LOSARTAN [Concomitant]
     Active Substance: LOSARTAN
  2. DIGOXIN. [Concomitant]
     Active Substance: DIGOXIN
  3. LYRICA [Suspect]
     Active Substance: PREGABALIN
     Dosage: 1 DF, 1X/DAY
  4. ASPIRIN ^BAYER^ [Concomitant]
     Active Substance: ASPIRIN

REACTIONS (1)
  - Dementia Alzheimer^s type [Unknown]
